FAERS Safety Report 7217826-1 (Version None)
Quarter: 2010Q4

REPORT INFORMATION
  Report Type: 
  Country: None (occurrence: None)
  Receive Date: 20101223
  Receipt Date: 20101214
  Transmission Date: 20110411
  Serious: Yes (Life-Threatening, Hospitalization, Other)
  Sender: FDA-Public Use
  Company Number: WAES 1008BEL00003

PATIENT
  Age: 66 Year
  Sex: Male

DRUGS (35)
  1. INJ CANCIDAS (CASPOFUNGIN ACETATE) [Suspect]
     Indication: INFECTION PROPHYLAXIS
     Dosage: 70 MG/DAILY, IV, 50 MG/DAILY, IV
     Route: 042
     Dates: start: 20100127, end: 20100127
  2. INJ CANCIDAS (CASPOFUNGIN ACETATE) [Suspect]
     Indication: INFECTION PROPHYLAXIS
     Dosage: 70 MG/DAILY, IV, 50 MG/DAILY, IV
     Route: 042
     Dates: start: 20100128
  3. TACROLIMUS [Suspect]
     Indication: IMMUNOSUPPRESSION
     Dates: start: 20090525, end: 20100127
  4. TACROLIMUS [Suspect]
     Indication: LIVER TRANSPLANT
     Dates: start: 20090525, end: 20100127
  5. TACROLIMUS [Suspect]
     Indication: IMMUNOSUPPRESSION
     Dates: start: 20100129, end: 20100309
  6. TACROLIMUS [Suspect]
     Indication: LIVER TRANSPLANT
     Dates: start: 20100129, end: 20100309
  7. TACROLIMUS [Suspect]
     Indication: IMMUNOSUPPRESSION
     Dates: start: 20100310, end: 20100314
  8. TACROLIMUS [Suspect]
     Indication: LIVER TRANSPLANT
     Dates: start: 20100310, end: 20100314
  9. TACROLIMUS [Suspect]
     Indication: IMMUNOSUPPRESSION
     Dates: start: 20100317
  10. TACROLIMUS [Suspect]
     Indication: LIVER TRANSPLANT
     Dates: start: 20100317
  11. VANCOMYCIN [Suspect]
     Indication: LOCALISED INTRAABDOMINAL FLUID COLLECTION
     Dosage: IV
     Route: 042
     Dates: start: 20100126, end: 20100204
  12. MAGNESIUM SULFATE [Concomitant]
  13. ACYCLOVIR [Concomitant]
  14. ALBUMIN (HUMAN) [Concomitant]
  15. AMPICILLIN [Concomitant]
  16. BLOOD CELLS, RED [Concomitant]
  17. CEFTEIAXONE SODIUM [Concomitant]
  18. DEXTROSE [Concomitant]
  19. ESOMEPRAZOLE [Concomitant]
  20. FENOTEROL HYDROBROMIDE (+) IPRATROPIUM B [Concomitant]
  21. HEPARIN [Concomitant]
  22. INSULIN [Concomitant]
  23. IPRATROPIUM BROMIDE [Concomitant]
  24. LACTITOL [Concomitant]
  25. MEROPENEM [Concomitant]
  26. METHYLPREDNISOLONE [Concomitant]
  27. MYCOPHENOLATE MOFETIL [Concomitant]
  28. NOREPINEPHRINE BITARTRATE [Concomitant]
  29. NORFLOXACIN [Concomitant]
  30. OMEPRAZOLE [Concomitant]
  31. PLASMA PROTEIN FRACTION (HUMAN) [Concomitant]
  32. SULFAMETHOXAZOLE AND TRIMETHOPRIM [Concomitant]
  33. TERLIPRESSIN [Concomitant]
  34. TRAMADOL HCL [Concomitant]
  35. URSODIOL [Concomitant]

REACTIONS (2)
  - DIALYSIS [None]
  - HYPERKALAEMIA [None]
